FAERS Safety Report 6222658-7 (Version None)
Quarter: 2009Q2

REPORT INFORMATION
  Report Type: 
  Country: None (occurrence: None)
  Receive Date: 20090611
  Receipt Date: 20090528
  Transmission Date: 20091009
  Serious: Yes (Other)
  Sender: FDA-Public Use
  Company Number: JP-ELI_LILLY_AND_COMPANY-JP200906000301

PATIENT
  Age: 65 Year
  Sex: Male

DRUGS (8)
  1. ZYPREXA [Suspect]
     Dosage: 5 MG, DAILY (1/D)
     Route: 048
     Dates: start: 20090415, end: 20090521
  2. BEZATOL - SLOW RELEASE [Concomitant]
     Route: 048
     Dates: start: 20090423, end: 20090502
  3. LIMAS [Concomitant]
     Route: 048
  4. TEGRETOL [Concomitant]
     Route: 048
  5. MYSLEE [Concomitant]
     Route: 048
  6. GOODMIN [Concomitant]
     Route: 048
  7. SALIGREN [Concomitant]
     Route: 048
  8. TERBINAFINE HYDROCHLORIDE [Concomitant]

REACTIONS (2)
  - MYALGIA [None]
  - RHABDOMYOLYSIS [None]
